FAERS Safety Report 9177538 (Version 2)
Quarter: 2013Q2

REPORT INFORMATION
  Report Type: Spontaneous
  Country: US (occurrence: US)
  Receive Date: 20121001
  Receipt Date: 20130426
  Transmission Date: 20140414
  Serious: Yes (Other)
  Sender: FDA-Public Use
  Company Number: US-RB-044968-12

PATIENT
  Sex: Female

DRUGS (7)
  1. BUPRENORPHINE HYDROCHLORIDE [Suspect]
     Indication: DRUG DEPENDENCE
     Route: 065
     Dates: start: 200910, end: 2009
  2. BUPRENORPHINE HYDROCHLORIDE [Suspect]
     Route: 065
     Dates: start: 20091209
  3. BUPRENORPHINE HYDROCHLORIDE [Suspect]
     Dosage: WEANED HERSELF DOWN TO 1/2 TABLET A DAY
     Route: 065
     Dates: start: 2009
  4. OXYCODONE [Suspect]
     Indication: PRODUCT USED FOR UNKNOWN INDICATION
     Dosage: DOSING DETAILS UNKNOWN
     Route: 065
     Dates: end: 2009
  5. MORPHINE [Suspect]
     Indication: PRODUCT USED FOR UNKNOWN INDICATION
     Dosage: DOSING DETAILS UNKNOWN
     Route: 065
     Dates: end: 2009
  6. HYDROCODONE [Suspect]
     Indication: PRODUCT USED FOR UNKNOWN INDICATION
     Dosage: DOSING DETAILS UNKNOWN
     Route: 065
     Dates: end: 2009
  7. NICOTINE [Suspect]
     Indication: TOBACCO USER
     Dosage: 20 CIGARETTES DAILY
     Route: 055

REACTIONS (5)
  - Exposure during pregnancy [Recovered/Resolved]
  - Bacterial toxaemia [Recovered/Resolved]
  - Labour complication [Recovered/Resolved]
  - Underdose [Recovered/Resolved]
  - Wrong technique in drug usage process [Recovered/Resolved]
